FAERS Safety Report 8260019-X (Version None)
Quarter: 2012Q2

REPORT INFORMATION
  Report Type: 
  Country: None (occurrence: None)
  Receive Date: 20120404
  Receipt Date: 20120402
  Transmission Date: 20120825
  Serious: Yes (Other)
  Sender: FDA-Public Use
  Company Number: NL-PFIZER INC-2012010041

PATIENT
  Age: 69 Year
  Sex: Female
  Weight: 74 kg

DRUGS (1)
  1. VARENICLINE TARTRATE [Suspect]
     Indication: SMOKING CESSATION THERAPY
     Dosage: UNK
     Dates: start: 20111101, end: 20120103

REACTIONS (10)
  - DIARRHOEA [None]
  - FLATULENCE [None]
  - GASTROOESOPHAGEAL REFLUX DISEASE [None]
  - AGEUSIA [None]
  - ANOSMIA [None]
  - HYPERHIDROSIS [None]
  - ABDOMINAL PAIN UPPER [None]
  - GASTRITIS BACTERIAL [None]
  - ABNORMAL DREAMS [None]
  - BREATH ODOUR [None]
